FAERS Safety Report 22621245 (Version 1)
Quarter: 2023Q2

REPORT INFORMATION
  Report Type: Spontaneous
  Country: CA (occurrence: None)
  Receive Date: 20230620
  Receipt Date: 20230620
  Transmission Date: 20230721
  Serious: Yes (Life-Threatening, Other)
  Sender: FDA-Public Use
  Company Number: CA-Hikma Pharmaceuticals USA Inc.-CA-H14001-23-02125

PATIENT
  Age: 82 Year
  Sex: Female

DRUGS (1)
  1. LIDOCAINE [Suspect]
     Active Substance: LIDOCAINE
     Indication: Product used for unknown indication
     Dosage: UNKNOWN
     Route: 065

REACTIONS (7)
  - Asterixis [Unknown]
  - Depressed level of consciousness [Unknown]
  - Dysarthria [Unknown]
  - Eye movement disorder [Unknown]
  - Feeling abnormal [Unknown]
  - Hypoaesthesia oral [Unknown]
  - Syncope [Unknown]
